FAERS Safety Report 9848214 (Version 1)
Quarter: 2013Q4

REPORT INFORMATION
  Report Type: Spontaneous
  Country: US (occurrence: None)
  Receive Date: 20131223
  Receipt Date: 20131223
  Transmission Date: 20140711
  Serious: Yes (Other)
  Sender: FDA-Public Use
  Company Number: 1000050947

PATIENT
  Age: 40 Year
  Sex: Female

DRUGS (16)
  1. LINZESS [Suspect]
     Route: 048
  2. MIRALAX [Suspect]
     Route: 048
  3. COLACE [Suspect]
     Route: 048
  4. FIBER (POLYCARBOPHIL CALCIUM) [Suspect]
     Route: 048
  5. MINERAL OIL [Suspect]
     Route: 048
  6. SEROQUEL (QUETIAPINE FUMARATE) (QUETIAPINE FUMARATE) ? [Concomitant]
  7. XANAX (ALPRAZOLAM) (ALPRAZOLAM) [Concomitant]
  8. LORAZEPAM (LORAZEPAM) (LORAZEPAM) [Concomitant]
  9. TRAZODONE HYDROCHLORIDE (TRAZODONE HYDROCHLORIDE) (TRAZODONE HYDROCHLORIDE) [Concomitant]
  10. AMBIEN (ZOLPIDEM TARTRATE) (ZOLPIDEM TARTRATE)? [Concomitant]
  11. OXYCODONE (OXYCODONE) (OXYCODONE)? [Concomitant]
  12. SOMA (CARISOPRODOL) (CARISOPRODOL) [Concomitant]
  13. EFEXOR (VENLAFAXINE HYDROCHLORIDE) (VENLAFAXINE HYDROCHLORIDE)? [Concomitant]
  14. VIT D (ERGOCALCIFEROL) (ERGOCALCIFEROL) [Concomitant]
  15. CYANOCOBALAMIN (CYANOCOBALAMIN) (CYANOCOBALAMIN)? [Concomitant]
  16. BIOTIN (BIOTIN) (BIOTIN) [Concomitant]

REACTIONS (1)
  - Abdominal distension [None]
